FAERS Safety Report 9053942 (Version 1)
Quarter: 2013Q1

REPORT INFORMATION
  Report Type: Report from Study
  Country: US (occurrence: US)
  Receive Date: 20130208
  Receipt Date: 20130208
  Transmission Date: 20140127
  Serious: Yes (Hospitalization)
  Sender: FDA-Public Use
  Company Number: US-AMGEN-US310246

PATIENT
  Age: 64 Year
  Sex: Female
  Weight: 110 kg

DRUGS (24)
  1. DARBEPOETIN ALFA [Suspect]
     Indication: CARDIAC FAILURE
     Dosage: UNK UNK, Q2WK
     Route: 058
     Dates: start: 20070914
  2. GABAPENTIN [Suspect]
     Dosage: 100 MG, TID
     Dates: end: 20081019
  3. LISINOPRIL [Concomitant]
     Dosage: 40 MG, QD
  4. CARVEDILOL [Concomitant]
     Dosage: 50 MG, BID
  5. AMLODIPINE BESILATE [Concomitant]
     Dosage: 10 MG, QD
  6. BUMETANIDE [Concomitant]
     Dosage: 3 MG, BID
  7. HYDROCHLOROTHIAZIDE [Concomitant]
     Dosage: UNK UNK, PRN
  8. WARFARIN SODIUM [Concomitant]
  9. EZETIMIBE [Concomitant]
     Dosage: 10 MG, QD
  10. ATORVASTATIN CALCIUM [Concomitant]
     Dosage: 80 MG, QD
  11. INSULIN HUMAN INJECTION, ISOPHANE [Concomitant]
  12. FLUTICASONE/SALMETEROL [Concomitant]
  13. ALBUTEROL SULFATE [Concomitant]
     Dosage: UNK UNK, QD
  14. PANTOPRAZOLE SODIUM [Concomitant]
     Dosage: 40 MG, QD
  15. ASPIRIN [Concomitant]
     Dosage: UNK UNK, QD
  16. LEVOTHRYROXINE SODIUM [Concomitant]
     Dosage: .1 MG, QD
  17. PREDNISONE [Concomitant]
     Dosage: 5 MG, QD
  18. LORAZEPAM [Concomitant]
     Dosage: .5 MG, BID
  19. TEMAZEPAM [Concomitant]
     Dosage: 30 MG, QD
  20. TOLTERODINE TARTRATE [Concomitant]
     Dosage: 4 MG, QD
  21. CYCLOBENZAPRINE HYDROCHLORIDE [Concomitant]
     Dosage: 10 MG, BID
  22. FERROUS SULFATE [Concomitant]
     Dosage: 325 MG, QD
  23. OXYGEN [Concomitant]
     Dosage: 2 L, QD
  24. GLYCERYL TRINITRATE [Concomitant]
     Dosage: .4 MG, PRN

REACTIONS (2)
  - Headache [Recovered/Resolved]
  - Cardiac failure [Recovered/Resolved]
